FAERS Safety Report 8474917-5 (Version None)
Quarter: 2012Q2

REPORT INFORMATION
  Report Type: 
  Country: None (occurrence: None)
  Receive Date: 20120628
  Receipt Date: 20120622
  Transmission Date: 20120825
  Serious: Yes (Other)
  Sender: FDA-Public Use
  Company Number: US-AMGEN-USASP2012033372

PATIENT
  Age: 33 Year
  Sex: Male
  Weight: 61.678 kg

DRUGS (29)
  1. ARANESP [Suspect]
     Dosage: 60 MUG, UNK
  2. CALCITRIOL [Concomitant]
     Dosage: 0.5 MUG, UNK
  3. CALCITRIOL [Concomitant]
     Dosage: 0.25 MUG, UNK
  4. GENTAMICIN [Concomitant]
     Dosage: 0.1 %, UNK
  5. HYDROCODONE BITARTRATE AND ACETAMINOPHEN [Concomitant]
     Dosage: 5-325, MG
  6. SENSIPAR [Concomitant]
     Dosage: 30 MG, UNK
  7. CEFEPIME                           /01263802/ [Concomitant]
  8. FLUZONE                            /00780601/ [Concomitant]
     Dosage: 0.5 ML
  9. KAYEXALATE [Concomitant]
  10. PNEUMOCOCCAL VACCINE POLYVALENT [Concomitant]
     Dosage: 0.5 ML, UNK
  11. TRAMADOL HCL [Concomitant]
  12. VANCOMYCIN [Concomitant]
     Dosage: 1 G, UNK
  13. ARANESP [Suspect]
     Dosage: 200 MUG, QMO
     Route: 058
     Dates: start: 20120416, end: 20120524
  14. FOSRENOL [Concomitant]
     Dosage: 1000 MG, UNK
  15. TUBERCULIN NOS [Concomitant]
     Dosage: 5 U.S UNITS (TU)/0.1ML
  16. ARANESP [Suspect]
     Dosage: 150 MUG, QMO
     Route: 058
     Dates: start: 20120322, end: 20120416
  17. SENSIPAR [Concomitant]
     Dosage: 60 MG, UNK
  18. CEFAZOLIN [Concomitant]
  19. RECOMBIVAX [Concomitant]
     Dosage: 40 MUG/ML, UNK
  20. RENAGEL [Concomitant]
     Dosage: 800 MG, UNK
  21. TUMS                               /00193601/ [Concomitant]
     Dosage: 500 MG, UNK
  22. ALTEPLASE [Concomitant]
     Dosage: 2 MG, UNK
  23. CALCITRIOL [Concomitant]
     Dosage: 1 MUG/ML, UNK
  24. TUMS                               /00193601/ [Concomitant]
     Dosage: 1000 MG, UNK
  25. ARANESP [Suspect]
     Indication: ANAEMIA
     Dosage: 100 MUG, QMO
     Route: 058
     Dates: start: 20120119, end: 20120322
  26. ARANESP [Suspect]
     Dosage: 300 MUG, QMO
     Route: 058
     Dates: start: 20120524
  27. VANCOMYCIN [Concomitant]
     Dosage: 1200 MG, ONE TIME DOSE
  28. DIALYVITE [Concomitant]
     Dosage: UNK
  29. MAGNESIUM CHLORIDE [Concomitant]
     Dosage: UNK

REACTIONS (2)
  - THERAPEUTIC RESPONSE DECREASED [None]
  - HAEMOGLOBIN DECREASED [None]
